FAERS Safety Report 25652714 (Version 2)
Quarter: 2025Q4

REPORT INFORMATION
  Report Type: Report from Study
  Country: US (occurrence: US)
  Receive Date: 20250807
  Receipt Date: 20251010
  Transmission Date: 20260117
  Serious: No
  Sender: GLAXOSMITHKLINE
  Company Number: US-GLAXOSMITHKLINE INC-US2025094695

PATIENT
  Sex: Female

DRUGS (1)
  1. MEPOLIZUMAB [Suspect]
     Active Substance: MEPOLIZUMAB
     Indication: Asthma
     Dosage: 100 MG

REACTIONS (12)
  - Eosinophilia [Unknown]
  - Condition aggravated [Unknown]
  - Hypopnoea [Unknown]
  - Mobility decreased [Unknown]
  - Anxiety [Unknown]
  - Chills [Unknown]
  - Dyspnoea exertional [Unknown]
  - Illness [Unknown]
  - Arthralgia [Unknown]
  - Malaise [Not Recovered/Not Resolved]
  - Pain [Unknown]
  - Fatigue [Unknown]
